FAERS Safety Report 4289206-2 (Version None)
Quarter: 2004Q1

REPORT INFORMATION
  Report Type: 
  Country: None (occurrence: None)
  Receive Date: 20040115
  Receipt Date: 20030918
  Transmission Date: 20041129
  Serious: No
  Sender: FDA-Public Use
  Company Number: 202553

PATIENT

DRUGS (1)
  1. ACTIVASE [Suspect]
     Indication: PLEURAL EFFUSION
     Dosage: 20 MG, SINGLE, INTRAPLEURAL
     Route: 034

REACTIONS (1)
  - HAEMORRHAGE [None]
